FAERS Safety Report 6973720-2 (Version None)
Quarter: 2010Q3

REPORT INFORMATION
  Report Type: 
  Country: None (occurrence: None)
  Receive Date: 20100909
  Receipt Date: 20100830
  Transmission Date: 20110219
  Serious: Yes (Death)
  Sender: FDA-Public Use
  Company Number: US-PFIZER INC-2010111655

PATIENT
  Age: 57 Year
  Sex: Male

DRUGS (5)
  1. RISPERIDONE [Suspect]
     Dosage: UNK
     Route: 065
  2. GABAPENTIN [Suspect]
     Dosage: UNK
  3. FENTANYL CITRATE [Suspect]
     Dosage: UNK
     Route: 065
  4. TRAZODONE HYDROCHLORIDE [Suspect]
     Dosage: UNK
     Route: 065
  5. DULOXETINE [Suspect]
     Dosage: UNK
     Route: 065

REACTIONS (3)
  - ALCOHOL POISONING [None]
  - DRUG TOXICITY [None]
  - OVERDOSE [None]
